FAERS Safety Report 5829385-6 (Version None)
Quarter: 2008Q3

REPORT INFORMATION
  Report Type: 
  Country: None (occurrence: None)
  Receive Date: 20080731
  Receipt Date: 20080723
  Transmission Date: 20090109
  Serious: Yes (Hospitalization)
  Sender: FDA-Public Use
  Company Number: US-BAXTER-2008BH007954

PATIENT
  Age: 20 Year
  Sex: Male
  Weight: 75 kg

DRUGS (7)
  1. FENTANYL CITRATE [Suspect]
     Indication: ANAESTHESIA
     Route: 042
  2. PROPOFOL [Suspect]
     Indication: ANAESTHESIA
     Route: 042
  3. LIDOCAINE AND EPINEPHRINE [Suspect]
     Indication: ANAESTHESIA
     Route: 042
  4. CANNABIS [Suspect]
     Indication: DRUG USE FOR UNKNOWN INDICATION
     Route: 065
  5. MIDAZOLAM HCL [Concomitant]
     Indication: ANAESTHESIA
     Route: 042
  6. VERSED [Concomitant]
     Indication: ANAESTHESIA
     Route: 042
  7. DEXTROSE 5% [Concomitant]
     Indication: DRUG USE FOR UNKNOWN INDICATION
     Route: 042

REACTIONS (14)
  - AGITATION [None]
  - BLOOD PROLACTIN INCREASED [None]
  - CONVERSION DISORDER [None]
  - CONVULSION [None]
  - DELUSION [None]
  - DISORIENTATION [None]
  - HEAD BANGING [None]
  - HEADACHE [None]
  - MYOCLONUS [None]
  - OPISTHOTONUS [None]
  - PSYCHOTIC DISORDER [None]
  - TOXICOLOGIC TEST ABNORMAL [None]
  - TREATMENT NONCOMPLIANCE [None]
  - VOMITING [None]
